FAERS Safety Report 8791047 (Version 2)
Quarter: 2012Q4

REPORT INFORMATION
  Report Type: Spontaneous
  Country: FR (occurrence: None)
  Receive Date: 20120910
  Receipt Date: 20120919
  Transmission Date: 20130627
  Serious: Yes (Life-Threatening, Other)
  Sender: FDA-Public Use
  Company Number: FK201202568

PATIENT
  Age: 35 Year
  Sex: Male

DRUGS (6)
  1. OXALIPLATIN [Suspect]
     Indication: METASTASES TO LIVER
  2. FLUOROURACIL [Suspect]
     Indication: METASTASES TO LIVER
  3. LEUCOVORIN CALCIUM [Suspect]
     Indication: METASTASES TO LIVER
  4. IRINOTECAN [Suspect]
     Indication: METASTASES TO LIVER
  5. CETUXIMAB [Concomitant]
     Indication: METASTASES TO LIVER
  6. None [Concomitant]

REACTIONS (16)
  - Dermatitis acneiform [None]
  - Neuropathy peripheral [None]
  - Anaemia [None]
  - Multi-organ failure [None]
  - Depressed level of consciousness [None]
  - Abdominal pain [None]
  - Tachypnoea [None]
  - Hypotension [None]
  - Tachycardia [None]
  - Jaundice [None]
  - Hepatosplenomegaly [None]
  - Renal failure acute [None]
  - Lactic acidosis [None]
  - Anuria [None]
  - Granulocytopenia [None]
  - Thrombocytopenia [None]
